FAERS Safety Report 16823063 (Version 1)
Quarter: 2019Q3

REPORT INFORMATION
  Report Type: Spontaneous
  Country: GB (occurrence: GB)
  Receive Date: 20190918
  Receipt Date: 20190918
  Transmission Date: 20191005
  Serious: Yes (Hospitalization)
  Sender: FDA-Public Use
  Company Number: PHHY2019GB213693

PATIENT
  Age: 55 Year
  Sex: Female

DRUGS (1)
  1. ZOLEDRONIC ACID [Suspect]
     Active Substance: ZOLEDRONIC ACID
     Indication: OSTEOPOROSIS
     Dosage: 5 MG, Q12MO
     Route: 041
     Dates: start: 20190625

REACTIONS (27)
  - Oropharyngeal pain [Unknown]
  - Eye irritation [Unknown]
  - Vision blurred [Unknown]
  - Body temperature increased [Unknown]
  - Pain [Recovering/Resolving]
  - Mouth swelling [Unknown]
  - Paraesthesia [Unknown]
  - Feeling cold [Recovering/Resolving]
  - Hallucination, visual [Unknown]
  - Sleep disorder [Unknown]
  - Swollen tongue [Unknown]
  - Nausea [Recovering/Resolving]
  - Tinnitus [Unknown]
  - Feeling hot [Unknown]
  - Feeling abnormal [Recovering/Resolving]
  - Anal incontinence [Unknown]
  - Abdominal migraine [Unknown]
  - Fatigue [Unknown]
  - Dyspnoea [Unknown]
  - Skin disorder [Unknown]
  - Dyspnoea [Unknown]
  - Asthenia [Unknown]
  - Dizziness [Recovering/Resolving]
  - Ear pain [Unknown]
  - Taste disorder [Unknown]
  - Headache [Unknown]
  - Decreased appetite [Unknown]

NARRATIVE: CASE EVENT DATE: 20190625
